FAERS Safety Report 7506414-5 (Version None)
Quarter: 2011Q2

REPORT INFORMATION
  Report Type: 
  Country: None (occurrence: None)
  Receive Date: 20110526
  Receipt Date: 20110520
  Transmission Date: 20111010
  Serious: Yes (Hospitalization)
  Sender: FDA-Public Use
  Company Number: FR-PFIZER INC-2011109053

PATIENT
  Sex: Male

DRUGS (1)
  1. PEDIATRIC ADVIL [Suspect]
     Indication: PYREXIA
     Dosage: 3 INTAKES PER DAY FOR 3 DAYS

REACTIONS (2)
  - NECROTISING FASCIITIS [None]
  - FALL [None]
